FAERS Safety Report 11690697 (Version 1)
Quarter: 2015Q4

REPORT INFORMATION
  Report Type: Spontaneous
  Country: IN (occurrence: IN)
  Receive Date: 20151102
  Receipt Date: 20151102
  Transmission Date: 20160304
  Serious: Yes (Other)
  Sender: FDA-Public Use
  Company Number: IN-HQ SPECIALTY-IN-2015INT000594

PATIENT
  Age: 45 Year
  Sex: Female

DRUGS (3)
  1. RADIOTHERAPY [Concomitant]
     Active Substance: RADIATION THERAPY
     Dosage: BRACHYTHERAPY, 29 GYRATIONS IN 22 HRS
  2. CISPLATIN. [Suspect]
     Active Substance: CISPLATIN
     Indication: SQUAMOUS CELL CARCINOMA OF THE CERVIX
     Dosage: 40 MG/M2, WEEKLY
     Dates: start: 2014, end: 2014
  3. RADIOTHERAPY [Concomitant]
     Active Substance: RADIATION THERAPY
     Indication: SQUAMOUS CELL CARCINOMA OF THE CERVIX
     Dosage: 46 GYRATIONS IN 23 FRACTIONS
     Dates: start: 20140112, end: 20141231

REACTIONS (9)
  - Vasculitis [Unknown]
  - Dry gangrene [None]
  - Dry skin [Unknown]
  - Skin discolouration [Unknown]
  - Sensory loss [Unknown]
  - Oedema peripheral [Unknown]
  - Peripheral coldness [Unknown]
  - Gangrene [Unknown]
  - Arm amputation [None]
